FAERS Safety Report 19605861 (Version 7)
Quarter: 2024Q4

REPORT INFORMATION
  Report Type: Report from Study
  Country: CA (occurrence: CA)
  Receive Date: 20210723
  Receipt Date: 20241017
  Transmission Date: 20250115
  Serious: Yes (Hospitalization, Other)
  Sender: TAKEDA
  Company Number: CA-TAKEDA-2021TUS015173

PATIENT
  Age: 71 Year
  Sex: Male

DRUGS (4)
  1. VEDOLIZUMAB [Suspect]
     Active Substance: VEDOLIZUMAB
     Indication: Crohn^s disease
     Dosage: 300 MILLIGRAM, Q4WEEKS
     Route: 042
     Dates: start: 20200511
  2. VEDOLIZUMAB [Suspect]
     Active Substance: VEDOLIZUMAB
     Dosage: 300 MILLIGRAM, Q4WEEKS
     Route: 042
  3. VEDOLIZUMAB [Suspect]
     Active Substance: VEDOLIZUMAB
     Dosage: 300 MILLIGRAM, Q4WEEKS
     Route: 042
  4. VEDOLIZUMAB [Suspect]
     Active Substance: VEDOLIZUMAB
     Indication: Crohn^s disease
     Dosage: 108 MILLIGRAM, Q2WEEKS
     Route: 058
     Dates: start: 20220627

REACTIONS (19)
  - Intestinal obstruction [Unknown]
  - Crohn^s disease [Unknown]
  - Haematochezia [Recovered/Resolved]
  - Ileal stenosis [Unknown]
  - Adrenal insufficiency [Unknown]
  - Oesophageal ulcer [Unknown]
  - Pulmonary embolism [Unknown]
  - Metastases to liver [Unknown]
  - Gastrointestinal haemorrhage [Unknown]
  - Therapeutic reaction time decreased [Unknown]
  - Off label use [Unknown]
  - Diarrhoea [Unknown]
  - Anaemia [Unknown]
  - Product storage error [Unknown]
  - COVID-19 [Unknown]
  - Poor quality sleep [Unknown]
  - Hypophosphataemia [Unknown]
  - Flatulence [Unknown]
  - Renal cyst [Unknown]

NARRATIVE: CASE EVENT DATE: 20200511
